FAERS Safety Report 12933689 (Version 1)
Quarter: 2016Q4

REPORT INFORMATION
  Report Type: Spontaneous
  Country: FR (occurrence: FR)
  Receive Date: 20161111
  Receipt Date: 20161111
  Transmission Date: 20170207
  Serious: Yes (Hospitalization)
  Sender: FDA-Public Use
  Company Number: FR-SA-2016SA203002

PATIENT
  Age: 54 Year
  Sex: Male

DRUGS (4)
  1. TIENAM [Concomitant]
     Active Substance: CILASTATIN SODIUM\IMIPENEM
     Dosage: ROUTE: PARENTERAL
  2. DAPTOMYCIN. [Concomitant]
     Active Substance: DAPTOMYCIN
     Dosage: ROUTE:PARENTERAL
  3. TAVANIC [Suspect]
     Active Substance: LEVOFLOXACIN
     Indication: INFECTION
     Route: 048
     Dates: start: 201609, end: 20161018
  4. RIFAMPICINE [Suspect]
     Active Substance: RIFAMPIN
     Indication: INFECTION
     Route: 065
     Dates: start: 201609, end: 20161018

REACTIONS (1)
  - Pancytopenia [Unknown]

NARRATIVE: CASE EVENT DATE: 20161015
